FAERS Safety Report 8614894 (Version 3)
Quarter: 2013Q1

REPORT INFORMATION
  Report Type: Spontaneous
  Country: CA (occurrence: CA)
  Receive Date: 20120614
  Receipt Date: 20130225
  Transmission Date: 20140127
  Serious: Yes (Other)
  Sender: FDA-Public Use
  Company Number: CA-GLAXOSMITHKLINE-A0980421A

PATIENT
  Sex: Female
  Weight: 75.5 kg

DRUGS (8)
  1. PAXIL [Suspect]
     Indication: MAJOR DEPRESSION
     Dosage: 30MG TWICE PER DAY
     Route: 065
     Dates: start: 20000228
  2. XANAX [Concomitant]
     Dosage: .5MG SIX TIMES PER DAY
     Route: 065
  3. WELLBUTRIN [Concomitant]
     Indication: DEPRESSION
     Dosage: 300Z PER DAY
     Route: 065
     Dates: start: 20100525
  4. SLEEPING PILLS [Concomitant]
     Dosage: 2TAB PER DAY
     Route: 065
  5. SEROQUEL [Concomitant]
     Indication: INSOMNIA
     Dates: start: 20110707
  6. ASA [Concomitant]
  7. DIABETES MEDICATION [Concomitant]
  8. ANTIHYPERTENSIVE (UNSPECIFIED) [Concomitant]

REACTIONS (6)
  - Loss of consciousness [Unknown]
  - Dizziness [Recovered/Resolved]
  - Vomiting [Unknown]
  - Tremor [Recovered/Resolved]
  - Loss of libido [Unknown]
  - Weight increased [Unknown]
